FAERS Safety Report 12092347 (Version 1)
Quarter: 2016Q1

REPORT INFORMATION
  Report Type: Spontaneous
  Country: US (occurrence: None)
  Receive Date: 20160217
  Receipt Date: 20160217
  Transmission Date: 20160526
  Serious: Yes (Life-Threatening, Hospitalization)
  Sender: FDA-Public Use
  Company Number: None

PATIENT
  Age: 66 Year
  Sex: Male
  Weight: 83.1 kg

DRUGS (2)
  1. PACLITAXEL. [Suspect]
     Active Substance: PACLITAXEL
     Indication: BRAIN NEOPLASM MALIGNANT
     Route: 042
     Dates: start: 20160212, end: 20160212
  2. PACLITAXEL. [Suspect]
     Active Substance: PACLITAXEL
     Indication: LUNG NEOPLASM MALIGNANT
     Route: 042
     Dates: start: 20160212, end: 20160212

REACTIONS (4)
  - Tachycardia [None]
  - Ventricular fibrillation [None]
  - Palpitations [None]
  - Resuscitation [None]

NARRATIVE: CASE EVENT DATE: 20160212
